FAERS Safety Report 5334917-0 (Version None)
Quarter: 2007Q2

REPORT INFORMATION
  Report Type: 
  Country: None (occurrence: None)
  Receive Date: 20070522
  Receipt Date: 20070511
  Transmission Date: 20071010
  Serious: Yes (Hospitalization)
  Sender: FDA-Public Use
  Company Number: 100#08#2007-01600

PATIENT
  Age: 38 Year
  Sex: Female

DRUGS (3)
  1. PAROXETINE HCL [Suspect]
     Indication: DRUG USE FOR UNKNOWN INDICATION
     Dosage: 1.8 G
  2. DIPHENHYDRAMINE HYDROCHLORIDE [Suspect]
     Indication: DRUG USE FOR UNKNOWN INDICATION
     Dosage: 400 MG
  3. TEMAZEPAM [Suspect]
     Indication: DRUG USE FOR UNKNOWN INDICATION
     Dosage: 280 MG

REACTIONS (13)
  - BLOOD ALCOHOL INCREASED [None]
  - BLOOD PRESSURE SYSTOLIC INCREASED [None]
  - ELECTROCARDIOGRAM QT PROLONGED [None]
  - FLUSHING [None]
  - GRAND MAL CONVULSION [None]
  - HYPERSENSITIVITY [None]
  - HYPERTONIA [None]
  - MULTIPLE DRUG OVERDOSE [None]
  - MYDRIASIS [None]
  - OBSTRUCTIVE AIRWAYS DISORDER [None]
  - PO2 DECREASED [None]
  - SEROTONIN SYNDROME [None]
  - SOMNOLENCE [None]
